FAERS Safety Report 5466320-7 (Version None)
Quarter: 2007Q3

REPORT INFORMATION
  Report Type: 
  Country: None (occurrence: None)
  Receive Date: 20070920
  Receipt Date: 20070911
  Transmission Date: 20080115
  Serious: Yes (Death)
  Sender: FDA-Public Use
  Company Number: 2007US002174

PATIENT
  Age: 61 Year
  Sex: Male

DRUGS (31)
  1. PROGRAF [Suspect]
     Indication: LUNG TRANSPLANT
     Dosage: SEE IMAGE
     Route: 048
     Dates: start: 20050307, end: 20050315
  2. PROGRAF [Suspect]
     Indication: LUNG TRANSPLANT
     Dosage: SEE IMAGE
     Route: 048
     Dates: start: 20050315, end: 20050317
  3. PROGRAF [Suspect]
     Indication: LUNG TRANSPLANT
     Dosage: SEE IMAGE
     Route: 048
     Dates: start: 20050317, end: 20050318
  4. PROGRAF [Suspect]
     Indication: LUNG TRANSPLANT
     Dosage: SEE IMAGE
     Route: 048
     Dates: start: 20050318, end: 20050322
  5. PROGRAF [Suspect]
     Indication: LUNG TRANSPLANT
     Dosage: SEE IMAGE
     Route: 048
     Dates: start: 20050322, end: 20050324
  6. PROGRAF [Suspect]
     Indication: LUNG TRANSPLANT
     Dosage: SEE IMAGE
     Route: 048
     Dates: start: 20050324, end: 20050404
  7. PROGRAF [Suspect]
     Indication: LUNG TRANSPLANT
     Dosage: SEE IMAGE
     Route: 048
     Dates: start: 20050404, end: 20050407
  8. PROGRAF [Suspect]
     Indication: LUNG TRANSPLANT
     Dosage: SEE IMAGE
     Route: 048
     Dates: start: 20050407, end: 20050624
  9. PROGRAF [Suspect]
     Indication: LUNG TRANSPLANT
     Dosage: SEE IMAGE
     Route: 048
     Dates: start: 20050624, end: 20050714
  10. PROGRAF [Suspect]
     Indication: LUNG TRANSPLANT
     Dosage: SEE IMAGE
     Route: 048
     Dates: start: 20050714, end: 20050805
  11. PROGRAF [Suspect]
     Indication: LUNG TRANSPLANT
     Dosage: SEE IMAGE
     Route: 048
     Dates: start: 20050805, end: 20051107
  12. PROGRAF [Suspect]
     Indication: LUNG TRANSPLANT
     Dosage: SEE IMAGE
     Route: 048
     Dates: start: 20051107, end: 20060105
  13. PROGRAF [Suspect]
     Indication: LUNG TRANSPLANT
     Dosage: SEE IMAGE
     Route: 048
     Dates: start: 20060105, end: 20060113
  14. PROGRAF [Suspect]
     Indication: LUNG TRANSPLANT
     Dosage: SEE IMAGE
     Route: 048
     Dates: start: 20060113
  15. RANITIDINE (RANITIDINE) [Concomitant]
  16. ASPIRIN [Concomitant]
  17. ALENDRONATE SODIUM [Concomitant]
  18. COMBIVENT [Concomitant]
  19. TAMSULOSIN HCL [Concomitant]
  20. CALCIUM CARBONATE [Concomitant]
  21. ASCORBIC ACID [Concomitant]
  22. MAGNESIUM OXIDE (MAGNESIUM OXIDE) [Concomitant]
  23. PENTAMIDINE (PENTAMIDINE) [Concomitant]
  24. VALGANCICLOVIR HCL [Concomitant]
  25. ENALAPRIL MALEATE [Concomitant]
  26. NEUPOGEN [Concomitant]
  27. OXYBUTYNIN CHLORIDE [Concomitant]
  28. PREDNISONE TAB [Concomitant]
  29. AZATHIOPRINE [Concomitant]
  30. MULTIVITAMINS (VITAMINS NOS) [Concomitant]
  31. ATORVASTATIN (ATORVASTATIN CALCIUM) [Concomitant]

REACTIONS (7)
  - BRAIN OEDEMA [None]
  - CENTRAL NERVOUS SYSTEM LYMPHOMA [None]
  - CONVULSION [None]
  - LYMPHOPROLIFERATIVE DISORDER [None]
  - MENTAL STATUS CHANGES [None]
  - PLATELET COUNT ABNORMAL [None]
  - POST PROCEDURAL HAEMORRHAGE [None]
